FAERS Safety Report 24011120 (Version 1)
Quarter: 2024Q2

REPORT INFORMATION
  Report Type: Spontaneous
  Country: CA (occurrence: CA)
  Receive Date: 20240625
  Receipt Date: 20240625
  Transmission Date: 20240716
  Serious: Yes (Death, Life-Threatening)
  Sender: FDA-Public Use
  Company Number: CA-FreseniusKabi-FK202409628

PATIENT
  Age: 14 Year
  Sex: Female
  Weight: 53 kg

DRUGS (3)
  1. FLUDARABINE [Suspect]
     Active Substance: FLUDARABINE PHOSPHATE
     Indication: Transplant
     Dosage: FORM OF ADMIN-NOT SPECIFIED
     Route: 042
  2. CYCLOPHOSPHAMIDE [Suspect]
     Active Substance: CYCLOPHOSPHAMIDE
     Indication: Transplant
     Dosage: FOA-NOT SPECIFIED
     Route: 042
  3. THYMOCYTE IMMUNE GLOBULIN NOS [Concomitant]
     Active Substance: THYMOCYTE IMMUNE GLOBULIN NOS
     Indication: Product used for unknown indication
     Dosage: FOA-INJECTION

REACTIONS (6)
  - Anaemia [Fatal]
  - Aplastic anaemia [Fatal]
  - Febrile neutropenia [Fatal]
  - Neutropenia [Fatal]
  - Staphylococcal bacteraemia [Fatal]
  - Thrombocytopenia [Fatal]
